FAERS Safety Report 5446691-8 (Version None)
Quarter: 2007Q3

REPORT INFORMATION
  Report Type: 
  Country: None (occurrence: None)
  Receive Date: 20070907
  Receipt Date: 20070827
  Transmission Date: 20080115
  Serious: Yes (Other)
  Sender: FDA-Public Use
  Company Number: DE-PFIZER INC-2007071779

PATIENT
  Sex: Female

DRUGS (3)
  1. AROMASIN [Suspect]
     Indication: BREAST CANCER
     Route: 048
     Dates: start: 20070501, end: 20070701
  2. SIOFOR [Suspect]
     Indication: DIABETES MELLITUS
     Dosage: DAILY DOSE:1700MG
     Route: 048
  3. NEBILET [Concomitant]
     Indication: HYPERTENSION

REACTIONS (3)
  - FATIGUE [None]
  - LIVER FUNCTION TEST ABNORMAL [None]
  - PRURITUS [None]
